FAERS Safety Report 22320053 (Version 1)
Quarter: 2023Q2

REPORT INFORMATION
  Report Type: Other
  Country: FR (occurrence: FR)
  Receive Date: 20230515
  Receipt Date: 20230515
  Transmission Date: 20230722
  Serious: Yes (Hospitalization, Other)
  Sender: FDA-Public Use
  Company Number: None

PATIENT
  Sex: Female

DRUGS (2)
  1. FETROJA [Suspect]
     Active Substance: CEFIDEROCOL SULFATE TOSYLATE
     Indication: Bacteraemia
     Dosage: 4.5 G, QD
     Route: 042
     Dates: start: 20230330
  2. TEICOPLANIN [Suspect]
     Active Substance: TEICOPLANIN
     Indication: Bacteraemia
     Dosage: 400 MG, QD
     Route: 042
     Dates: start: 20230321

REACTIONS (1)
  - Acute kidney injury [Recovering/Resolving]

NARRATIVE: CASE EVENT DATE: 20230422
